FAERS Safety Report 8839596 (Version 2)
Quarter: 2012Q4

REPORT INFORMATION
  Report Type: 
  Country: CA (occurrence: CA)
  Receive Date: 20121015
  Receipt Date: 20121218
  Transmission Date: 20130627
  Serious: Yes (Hospitalization)
  Sender: FDA-Public Use
  Company Number: PHHY2012CA090860

PATIENT
  Age: 85 Year
  Sex: Female

DRUGS (20)
  1. ACLASTA [Suspect]
     Indication: OSTEITIS DEFORMANS
     Dosage: UNK
     Route: 042
     Dates: start: 20110517
  2. ACLASTA [Suspect]
     Dosage: UNK
     Route: 042
     Dates: start: 201206
  3. CRESTOR [Concomitant]
     Dosage: 40 mg, UNK
  4. RAMIPRIL [Concomitant]
     Dosage: 30 mg, UNK
  5. PANTOLOC//PANTOPRAZOLE SODIUM SESQUIHYDRATE [Concomitant]
     Dosage: 40 mg, (2tabs 1breakfast, 1supper)
  6. METOPROLOL [Concomitant]
     Dosage: 100 mg, BID (1 morning one evening)
  7. METOPROLOL [Concomitant]
     Dosage: 25 mg, BID, every 12 hours
  8. AMLODIPINE [Concomitant]
     Dosage: 5 mg, UNK
  9. APO-ALLOPURINOL [Concomitant]
     Dosage: 100 mg, UNK
  10. APO-ALLOPURINOL [Concomitant]
     Dosage: 20 mg, UNK
  11. ASAPHEN [Concomitant]
     Dosage: 80 mg, UNK
  12. NITRODEX [Concomitant]
  13. ADVAIR [Concomitant]
     Dosage: 1 DF, BID (250 diskus)
  14. SALBUTAMOL [Concomitant]
     Dosage: 2 DF, QID
  15. PLAVIX [Concomitant]
     Dosage: 75 mg, daily AM
  16. QUININE [Concomitant]
     Dosage: 200 mg, bed time
  17. DOCUSATE [Concomitant]
     Dosage: 100 mg, (2 capsules daily bedtime)
  18. APO-CALCITONIN [Concomitant]
     Dosage: 1 DF, QD
     Dates: start: 20110304
  19. ANTIHYPERTENSIVES [Concomitant]
  20. BETA BLOCKING AGENTS [Concomitant]

REACTIONS (9)
  - Myocardial infarction [Recovered/Resolved]
  - Chest discomfort [Unknown]
  - Muscular weakness [Unknown]
  - Hypokinesia [Unknown]
  - Dyspnoea [Unknown]
  - Fatigue [Unknown]
  - Musculoskeletal pain [Unknown]
  - Angina pectoris [Unknown]
  - Cerebrovascular accident [Recovered/Resolved]
